FAERS Safety Report 8102217-1 (Version None)
Quarter: 2012Q1

REPORT INFORMATION
  Report Type: 
  Country: None (occurrence: None)
  Receive Date: 20120201
  Receipt Date: 20120125
  Transmission Date: 20120608
  Serious: No
  Sender: FDA-Public Use
  Company Number: US-BIOGENIDEC-2012BI003138

PATIENT
  Age: 30 Year
  Sex: Female

DRUGS (3)
  1. AVONEX [Suspect]
     Indication: MULTIPLE SCLEROSIS
     Route: 030
     Dates: start: 20120110, end: 20120110
  2. AVONEX [Suspect]
     Route: 030
     Dates: start: 20120117, end: 20120117
  3. AVONEX [Suspect]
     Route: 030
     Dates: start: 20120124

REACTIONS (7)
  - HOT FLUSH [None]
  - DECREASED APPETITE [None]
  - FATIGUE [None]
  - INFLUENZA LIKE ILLNESS [None]
  - MYALGIA [None]
  - ARTHRALGIA [None]
  - ANXIETY [None]
